FAERS Safety Report 21630056 (Version 3)
Quarter: 2022Q4

REPORT INFORMATION
  Report Type: Report from Study
  Country: JP (occurrence: JP)
  Receive Date: 20221122
  Receipt Date: 20221209
  Transmission Date: 20230113
  Serious: Yes (Hospitalization, Other)
  Sender: FDA-Public Use
  Company Number: JP-ONO-2022JP030548

PATIENT
  Age: 66 Year
  Sex: Male
  Weight: 50 kg

DRUGS (15)
  1. NIVOLUMAB [Suspect]
     Active Substance: NIVOLUMAB
     Indication: Non-small cell lung cancer
     Route: 041
     Dates: start: 20221108, end: 20221108
  2. ATAMPARIB [Suspect]
     Active Substance: ATAMPARIB
     Indication: Non-small cell lung cancer
     Route: 048
     Dates: start: 20221108, end: 20221116
  3. VONOPRAZAN FUMARATE [Concomitant]
     Active Substance: VONOPRAZAN FUMARATE
     Indication: Product used for unknown indication
     Route: 065
     Dates: start: 20220222
  4. FLUNITRAZEPAM [Concomitant]
     Active Substance: FLUNITRAZEPAM
     Indication: Insomnia
     Route: 065
     Dates: start: 20220310
  5. LEVOCETIRIZINE HYDROCHLORIDE [Concomitant]
     Active Substance: LEVOCETIRIZINE HYDROCHLORIDE
     Indication: Product used for unknown indication
     Route: 065
     Dates: start: 20220519
  6. MIROGABALIN BESYLATE [Concomitant]
     Active Substance: MIROGABALIN BESYLATE
     Indication: Peripheral sensory neuropathy
     Dosage: 20 MG
     Route: 065
     Dates: start: 20220728
  7. LOXOPROFEN SODIUM DIHYDRATE [Concomitant]
     Active Substance: LOXOPROFEN SODIUM DIHYDRATE
     Indication: Non-small cell lung cancer
     Route: 065
     Dates: start: 20221108, end: 20221109
  8. ACETAMINOPHEN [Concomitant]
     Active Substance: ACETAMINOPHEN
     Indication: Non-small cell lung cancer
     Route: 065
     Dates: start: 20221110
  9. MAGNESIUM OXIDE [Concomitant]
     Active Substance: MAGNESIUM OXIDE
     Indication: Constipation
     Route: 048
     Dates: start: 20221109
  10. OXYCODONE HYDROCHLORIDE [Concomitant]
     Active Substance: OXYCODONE HYDROCHLORIDE
     Indication: Non-small cell lung cancer
     Route: 065
     Dates: start: 20221114
  11. FUROSEMIDE [Concomitant]
     Active Substance: FUROSEMIDE
     Indication: Non-small cell lung cancer
     Dates: start: 20221122, end: 20221122
  12. FUROSEMIDE [Concomitant]
     Active Substance: FUROSEMIDE
     Dates: start: 20221121, end: 20221121
  13. MIYA-BM [Concomitant]
     Active Substance: CLOSTRIDIUM BUTYRICUM SPORES STRAIN M-55
     Indication: Diarrhoea
     Dates: start: 20221121, end: 20221124
  14. WHITE PETROLATUM [Concomitant]
     Active Substance: PETROLATUM
     Indication: Product used for unknown indication
     Dates: start: 20221122
  15. BIFIDOBACTERIUM BIFIDUM [Concomitant]
     Active Substance: BIFIDOBACTERIUM BIFIDUM
     Indication: Diarrhoea
     Dates: start: 20221118, end: 20221122

REACTIONS (3)
  - Pyrexia [Recovered/Resolved]
  - Pulmonary toxicity [Recovering/Resolving]
  - Spinal fracture [Not Recovered/Not Resolved]

NARRATIVE: CASE EVENT DATE: 20221109
